FAERS Safety Report 14631890 (Version 2)
Quarter: 2018Q1

REPORT INFORMATION
  Report Type: Spontaneous
  Country: US (occurrence: US)
  Receive Date: 20180313
  Receipt Date: 20180327
  Transmission Date: 20180509
  Serious: Yes (Other)
  Sender: FDA-Public Use
  Company Number: PHHY2018US037906

PATIENT
  Age: 68 Year
  Sex: Female

DRUGS (1)
  1. ZOLEDRONATE [Suspect]
     Active Substance: ZOLEDRONIC ACID
     Indication: OSTEOPOROSIS
     Dosage: 4 MG, UNK
     Route: 041

REACTIONS (14)
  - Iridocyclitis [Recovered/Resolved]
  - Swelling [Unknown]
  - Photophobia [Unknown]
  - Myalgia [Unknown]
  - Idiopathic orbital inflammation [Recovered/Resolved]
  - Hyphaema [Recovered/Resolved]
  - Eyelid oedema [Unknown]
  - Arthralgia [Unknown]
  - Eye pain [Unknown]
  - Pyrexia [Unknown]
  - Scleritis [Recovered/Resolved]
  - Visual acuity reduced [Unknown]
  - Corneal endotheliitis [Recovered/Resolved]
  - Erythema [Unknown]
